FAERS Safety Report 8130982-6 (Version None)
Quarter: 2012Q1

REPORT INFORMATION
  Report Type: 
  Country: None (occurrence: None)
  Receive Date: 20120213
  Receipt Date: 20120207
  Transmission Date: 20120608
  Serious: No
  Sender: FDA-Public Use
  Company Number: US-PFIZER INC-2012033172

PATIENT

DRUGS (1)
  1. NEURONTIN [Suspect]
     Dosage: 1200 MG, UNK

REACTIONS (3)
  - DIARRHOEA [None]
  - ANXIETY [None]
  - HYPERHIDROSIS [None]
